FAERS Safety Report 17631837 (Version 1)
Quarter: 2020Q2

REPORT INFORMATION
  Report Type: Spontaneous
  Country: US (occurrence: US)
  Receive Date: 20200403
  Receipt Date: 20200403
  Transmission Date: 20200713
  Serious: Yes (Hospitalization)
  Sender: FDA-Public Use
  Company Number: None

PATIENT
  Age: 21 Month
  Sex: Male
  Weight: 11.5 kg

DRUGS (5)
  1. VINCRISTINE SULFATE. [Suspect]
     Active Substance: VINCRISTINE SULFATE
     Dosage: ?          OTHER DOSE:.74 MG;?
     Dates: end: 20200320
  2. ZINECARD [Suspect]
     Active Substance: DEXRAZOXANE HYDROCHLORIDE
     Dates: end: 20200314
  3. CISPLATIN. [Suspect]
     Active Substance: CISPLATIN
     Dates: end: 20200312
  4. DOXORUBICIN HYDROCHLORIDE. [Suspect]
     Active Substance: DOXORUBICIN HYDROCHLORIDE
     Dates: end: 20200313
  5. 5-FLUOROURACIL (5-FU) [Suspect]
     Active Substance: FLUOROURACIL
     Dates: end: 20200312

REACTIONS (6)
  - Pyrexia [None]
  - Malaise [None]
  - Oropharyngeal pain [None]
  - Decreased activity [None]
  - Decreased appetite [None]
  - Drooling [None]

NARRATIVE: CASE EVENT DATE: 20200325
